FAERS Safety Report 5809451-1 (Version None)
Quarter: 2008Q3

REPORT INFORMATION
  Report Type: 
  Country: None (occurrence: None)
  Receive Date: 20080709
  Receipt Date: 20080630
  Transmission Date: 20090109
  Serious: Yes (Other)
  Sender: FDA-Public Use
  Company Number: 2008AP001629

PATIENT
  Age: 64 Year
  Sex: Male

DRUGS (5)
  1. PRAVASTATIN [Suspect]
     Dosage: 40 MG; QD
  2. AMLODIPINE [Concomitant]
  3. LOSARTAN POTASSIUM [Concomitant]
  4. SOTALOL HCL [Concomitant]
  5. ACETYLSALICYLIC ACID SRT [Concomitant]

REACTIONS (1)
  - POLYNEUROPATHY [None]
